FAERS Safety Report 8938474 (Version 2)
Quarter: 2013Q1

REPORT INFORMATION
  Report Type: Report from Study
  Country: JP (occurrence: JP)
  Receive Date: 20121201
  Receipt Date: 20130222
  Transmission Date: 20140127
  Serious: Yes (Other)
  Sender: FDA-Public Use
  Company Number: JP-009507513-1211JPN011895

PATIENT
  Age: 47 Year
  Sex: Female
  Weight: 53 kg

DRUGS (5)
  1. PEGINTRON [Suspect]
     Indication: CHRONIC HEPATITIS C
     Dosage: 1 MICROGRAM PER KILOGRAM, UNK
     Route: 058
     Dates: start: 20120508
  2. REBETOL [Suspect]
     Indication: CHRONIC HEPATITIS C
     Dosage: 200 MG, QD
     Route: 048
     Dates: start: 20120508, end: 20120620
  3. REBETOL [Suspect]
     Dosage: 200 MG,ON ALTERNATE DAYS
     Route: 048
     Dates: start: 20120621
  4. TELAVIC [Suspect]
     Indication: CHRONIC HEPATITIS C
     Dosage: 1500MG,QD
     Route: 048
     Dates: start: 20120508, end: 20120718
  5. LOXONIN [Concomitant]
     Indication: PROPHYLAXIS
     Dosage: 60 MG,QD, FORMULATION : POR
     Route: 048
     Dates: start: 20120508

REACTIONS (1)
  - Cough [Recovered/Resolved]
